FAERS Safety Report 6369201-X (Version None)
Quarter: 2009Q3

REPORT INFORMATION
  Report Type: 
  Country: None (occurrence: None)
  Receive Date: 20090908
  Receipt Date: 20090828
  Transmission Date: 20100115
  Serious: Yes (Other)
  Sender: FDA-Public Use
  Company Number: 2009020640

PATIENT
  Age: 68 Year
  Sex: Female

DRUGS (1)
  1. IGIVNEX [Suspect]
     Indication: GUILLAIN-BARRE SYNDROME
     Dosage: 5 G, 5 G DAILY FOR 4 DAYS INTRAVENOUS (NOT OTHERWISE SPECIFIED)
     Route: 042

REACTIONS (5)
  - BLINDNESS [None]
  - CEREBRAL INFARCTION [None]
  - CONFUSIONAL STATE [None]
  - QUADRIPLEGIA [None]
  - STUPOR [None]
